FAERS Safety Report 5343656-1 (Version None)
Quarter: 2007Q2

REPORT INFORMATION
  Report Type: 
  Country: None (occurrence: None)
  Receive Date: 20070531
  Receipt Date: 20070518
  Transmission Date: 20071010
  Serious: Yes (Hospitalization)
  Sender: FDA-Public Use
  Company Number: 163-20785-07051168

PATIENT
  Age: 57 Year
  Sex: Female

DRUGS (9)
  1. THALOMD (THALIDOMIDE) (CAPSULES) [Suspect]
     Indication: MULTIPLE MYELOMA
     Dosage: 100 MG, DAILY, ORAL
     Route: 048
     Dates: start: 20060601, end: 20061122
  2. CELEXA [Concomitant]
  3. LISINOPRIL [Concomitant]
  4. CYCLOBENZAPRINE HCL [Concomitant]
  5. SULAR [Concomitant]
  6. ATENOLOL [Concomitant]
  7. CALCIUM (CALCIUM) [Concomitant]
  8. VITAMIN D [Concomitant]
  9. DEXAMETHASONE (DEXAMEHTASONE) (CAPSULES) [Concomitant]

REACTIONS (4)
  - IMPAIRED HEALING [None]
  - PLASMACYTOMA [None]
  - POST PROCEDURAL COMPLICATION [None]
  - SOFT TISSUE NECROSIS [None]
